FAERS Safety Report 6526197-5 (Version None)
Quarter: 2009Q4

REPORT INFORMATION
  Report Type: 
  Country: None (occurrence: None)
  Receive Date: 20091228
  Receipt Date: 20091217
  Transmission Date: 20100525
  Serious: Yes (Hospitalization)
  Sender: FDA-Public Use
  Company Number: 234952J09USA

PATIENT
  Age: 71 Year
  Sex: Female

DRUGS (2)
  1. REBIF [Suspect]
     Indication: MULTIPLE SCLEROSIS
     Dosage: 44 MCG, 3 IN 1 WEEKS, SUBCUTANEOUS
     Route: 058
     Dates: start: 20090406
  2. FAMPRIDINE [Suspect]
     Indication: BALANCE DISORDER
     Dosage: 15 MG
     Dates: start: 20091101, end: 20091101

REACTIONS (5)
  - FEELING COLD [None]
  - HALLUCINATION [None]
  - HALLUCINATION, VISUAL [None]
  - SOCIAL AVOIDANT BEHAVIOUR [None]
  - TREMOR [None]
